FAERS Safety Report 15328606 (Version 2)
Quarter: 2018Q4

REPORT INFORMATION
  Report Type: Spontaneous
  Country: BR (occurrence: BR)
  Receive Date: 20180829
  Receipt Date: 20180921
  Transmission Date: 20190204
  Serious: No
  Sender: FDA-Public Use
  Company Number: BR-IGSA-SR10006464

PATIENT
  Age: 14 Year
  Sex: Female
  Weight: 37 kg

DRUGS (1)
  1. ALBUMINA HUMANA GRIFOLS 20% [Suspect]
     Active Substance: ALBUMIN HUMAN
     Indication: PLASMAPHERESIS
     Dosage: 40 G, SINGLE
     Dates: start: 20180521, end: 20180521

REACTIONS (5)
  - Cough [Recovered/Resolved]
  - Pruritus [Recovered/Resolved]
  - Papule [Recovered/Resolved]
  - Eyelid oedema [Recovered/Resolved]
  - Dysphonia [Recovered/Resolved]

NARRATIVE: CASE EVENT DATE: 20180521
